FAERS Safety Report 25818554 (Version 2)
Quarter: 2025Q3

REPORT INFORMATION
  Report Type: Other
  Country: US (occurrence: US)
  Receive Date: 20250918
  Receipt Date: 20250922
  Transmission Date: 20251020
  Serious: No
  Sender: TRAVERE THERAPEUTICS
  Company Number: US-TRAVERE-2025TVT01094

PATIENT
  Sex: Female

DRUGS (4)
  1. FILSPARI [Suspect]
     Active Substance: SPARSENTAN
     Indication: Nephritic syndrome
     Route: 048
  2. FILSPARI [Suspect]
     Active Substance: SPARSENTAN
     Indication: Focal segmental glomerulosclerosis
  3. TAMIFLU [Suspect]
     Active Substance: OSELTAMIVIR PHOSPHATE
  4. JARDIANCE [Concomitant]
     Active Substance: EMPAGLIFLOZIN

REACTIONS (2)
  - Off label use [Unknown]
  - Drug hypersensitivity [Unknown]
